FAERS Safety Report 8292337-3 (Version None)
Quarter: 2012Q2

REPORT INFORMATION
  Report Type: 
  Country: None (occurrence: None)
  Receive Date: 20120417
  Receipt Date: 20120409
  Transmission Date: 20120825
  Serious: Yes (Other)
  Sender: FDA-Public Use
  Company Number: BR-ROCHE-1027161

PATIENT
  Sex: Female

DRUGS (1)
  1. XOLAIR [Suspect]
     Indication: ASTHMA
     Route: 058

REACTIONS (7)
  - FATIGUE [None]
  - RESPIRATORY TRACT INFECTION [None]
  - IMMUNODEFICIENCY [None]
  - ALLERGIC RESPIRATORY SYMPTOM [None]
  - SINUSITIS [None]
  - WEIGHT INCREASED [None]
  - ASTHMA [None]
